FAERS Safety Report 9720679 (Version 2)
Quarter: 2014Q1

REPORT INFORMATION
  Report Type: Spontaneous
  Country: JP (occurrence: JP)
  Receive Date: 20131129
  Receipt Date: 20140313
  Transmission Date: 20141002
  Serious: Yes (Death, Hospitalization, Other)
  Sender: FDA-Public Use
  Company Number: PHHY2013JP137174

PATIENT
  Sex: Female

DRUGS (2)
  1. FEMARA [Suspect]
     Indication: INVASIVE DUCTAL BREAST CARCINOMA
     Route: 048
  2. ZOMETA [Suspect]
     Indication: INVASIVE DUCTAL BREAST CARCINOMA
     Route: 041

REACTIONS (8)
  - Breast cancer metastatic [Fatal]
  - Malignant neoplasm progression [Fatal]
  - Disseminated intravascular coagulation [Recovering/Resolving]
  - Fibrin D dimer increased [Unknown]
  - Purpura [Unknown]
  - Thrombocytopenia [Recovering/Resolving]
  - Metastases to liver [Unknown]
  - Metastases to central nervous system [Unknown]
